FAERS Safety Report 25648828 (Version 2)
Quarter: 2025Q3

REPORT INFORMATION
  Report Type: Report from Study
  Country: EG (occurrence: EG)
  Receive Date: 20250806
  Receipt Date: 20250820
  Transmission Date: 20251021
  Serious: Yes (Other)
  Sender: NOVARTIS
  Company Number: EG-002147023-NVSC2025EG122786

PATIENT
  Sex: Female
  Weight: 52 kg

DRUGS (7)
  1. KISQALI [Suspect]
     Active Substance: RIBOCICLIB SUCCINATE
     Indication: Breast cancer metastatic
     Route: 048
     Dates: start: 202503, end: 202504
  2. KISQALI [Suspect]
     Active Substance: RIBOCICLIB SUCCINATE
     Route: 048
     Dates: start: 202504, end: 20250730
  3. FEMARA [Suspect]
     Active Substance: LETROZOLE
     Indication: Breast cancer metastatic
     Dosage: 2.5 MG, QD
     Route: 048
     Dates: start: 202503, end: 20250730
  4. ZOMETA [Suspect]
     Active Substance: ZOLEDRONIC ACID
     Indication: Arthralgia
     Route: 042
     Dates: start: 202506
  5. IRON\MINERALS\VITAMINS [Suspect]
     Active Substance: IRON\MINERALS\VITAMINS
     Indication: Haemoglobin abnormal
     Dosage: UNK, QD CAPSULE (END DATE 2 WEEKS AGO)
     Route: 048
     Dates: start: 202504
  6. IRON\MINERALS\VITAMINS [Suspect]
     Active Substance: IRON\MINERALS\VITAMINS
     Indication: Full blood count abnormal
  7. CELEBREX [Suspect]
     Active Substance: CELECOXIB
     Indication: Pain
     Route: 048

REACTIONS (13)
  - Metastases to peritoneum [Not Recovered/Not Resolved]
  - Malignant neoplasm progression [Not Recovered/Not Resolved]
  - Platelet count decreased [Recovered/Resolved]
  - White blood cell count decreased [Recovered/Resolved]
  - Metastases to pleura [Not Recovered/Not Resolved]
  - Mouth ulceration [Recovering/Resolving]
  - Abdominal pain upper [Not Recovered/Not Resolved]
  - Arthralgia [Not Recovered/Not Resolved]
  - Rash [Recovered/Resolved]
  - Hot flush [Not Recovered/Not Resolved]
  - Drug ineffective [Not Recovered/Not Resolved]
  - Off label use [Recovered/Resolved]
  - Product use in unapproved indication [Unknown]

NARRATIVE: CASE EVENT DATE: 20250101
